FAERS Safety Report 20166443 (Version 2)
Quarter: 2021Q4

REPORT INFORMATION
  Report Type: Spontaneous
  Country: CH (occurrence: CH)
  Receive Date: 20211209
  Receipt Date: 20211223
  Transmission Date: 20220303
  Serious: Yes (Life-Threatening, Other)
  Sender: FDA-Public Use
  Company Number: CH-TEVA-2021-CH-1984850

PATIENT
  Age: 68 Year
  Sex: Male

DRUGS (13)
  1. DOXORUBICIN [Suspect]
     Active Substance: DOXORUBICIN
     Indication: Cutaneous T-cell lymphoma
     Dosage: 50MG/M2, B-CHP REGIMEN
     Route: 042
  2. METHOTREXATE [Suspect]
     Active Substance: METHOTREXATE
     Indication: Cutaneous T-cell lymphoma
     Dosage: 15MG
     Route: 037
  3. METHOTREXATE [Suspect]
     Active Substance: METHOTREXATE
     Indication: Prophylactic chemotherapy
  4. VINCRISTINE [Suspect]
     Active Substance: VINCRISTINE
     Indication: Cutaneous T-cell lymphoma
     Dosage: 2MG ON DAY 1; CHOEP REGIMEN
     Route: 042
  5. CYCLOPHOSPHAMIDE [Suspect]
     Active Substance: CYCLOPHOSPHAMIDE
     Indication: Cutaneous T-cell lymphoma
     Dosage: 750MG/M2 CHOEP REGIMEN
     Route: 042
  6. ETOPOSIDE [Suspect]
     Active Substance: ETOPOSIDE
     Indication: Cutaneous T-cell lymphoma
     Dosage: 100MG/M2 ON DAY 1 TO 3; CHOEP REGIMEN
     Route: 042
  7. PREDNISONE [Suspect]
     Active Substance: PREDNISONE
     Indication: Cutaneous T-cell lymphoma
     Dosage: 100 MILLIGRAM DAILY; ON DAY 1 THROUGH 5 EVERY 21 DAYS; CHOEP REGIMEN
     Route: 048
  8. PREDNISONE [Suspect]
     Active Substance: PREDNISONE
     Dosage: 100 MILLIGRAM DAILY; ON DAY 1 TO 5 EVERY 21 DAYS; B-CHP REGIMEN
     Route: 048
  9. CYTARABINE [Suspect]
     Active Substance: CYTARABINE
     Indication: Cutaneous T-cell lymphoma
     Dosage: 30MG
     Route: 037
  10. CYTARABINE [Suspect]
     Active Substance: CYTARABINE
     Indication: Prophylactic chemotherapy
  11. METHYLPREDNISOLONE [Suspect]
     Active Substance: METHYLPREDNISOLONE
     Indication: Cutaneous T-cell lymphoma
     Dosage: 30MG
     Route: 037
  12. METHYLPREDNISOLONE [Suspect]
     Active Substance: METHYLPREDNISOLONE
     Indication: Prophylactic chemotherapy
  13. BRENTUXIMAB VEDOTIN [Suspect]
     Active Substance: BRENTUXIMAB VEDOTIN
     Indication: Cutaneous T-cell lymphoma
     Dosage: 1.8MG/KG B-CHP REGIMEN
     Route: 042

REACTIONS (1)
  - Drug ineffective [Unknown]
